FAERS Safety Report 23881140 (Version 1)
Quarter: 2024Q2

REPORT INFORMATION
  Report Type: Spontaneous
  Country: FR (occurrence: FR)
  Receive Date: 20240521
  Receipt Date: 20240521
  Transmission Date: 20240716
  Serious: Yes (Hospitalization)
  Sender: FDA-Public Use
  Company Number: FR-SUN PHARMACEUTICAL INDUSTRIES LTD-2024RR-447522

PATIENT
  Age: 74 Year
  Sex: Female

DRUGS (4)
  1. IBUPROFEN [Suspect]
     Active Substance: IBUPROFEN
     Indication: Arthritis
     Dosage: 4000 MILLIGRAM,IMV BY 10 CAPS OF IBUPROFEN 400 MG
     Route: 048
     Dates: start: 20240214, end: 20240214
  2. IBUPROFEN [Suspect]
     Active Substance: IBUPROFEN
     Dosage: 400 MILLIGRAM, 1DOSE/ASNECESSA
     Route: 048
     Dates: start: 20240207, end: 20240213
  3. ACETAMINOPHEN [Concomitant]
     Active Substance: ACETAMINOPHEN
     Indication: Arthritis
     Dosage: 8000 MILLIGRAM
     Route: 048
     Dates: start: 20240214, end: 20240214
  4. ACETAMINOPHEN [Concomitant]
     Active Substance: ACETAMINOPHEN
     Dosage: 500 MILLIGRAM, 1DOSE/ASNECESSA
     Route: 048
     Dates: end: 20240213

REACTIONS (1)
  - Rash maculo-papular [Recovering/Resolving]

NARRATIVE: CASE EVENT DATE: 20240216
